FAERS Safety Report 21646191 (Version 1)
Quarter: 2022Q4

REPORT INFORMATION
  Report Type: Spontaneous
  Country: DK (occurrence: DK)
  Receive Date: 20221126
  Receipt Date: 20221126
  Transmission Date: 20230113
  Serious: Yes (Hospitalization)
  Sender: FDA-Public Use
  Company Number: None

PATIENT
  Age: 55 Year
  Sex: Male

DRUGS (2)
  1. ALLOPURINOL [Suspect]
     Active Substance: ALLOPURINOL
     Indication: Gout
     Dosage: TABLET (UNCOATED, ORAL)
     Dates: start: 20171109, end: 20171121
  2. AZATHIOPRINE SODIUM [Suspect]
     Active Substance: AZATHIOPRINE SODIUM
     Indication: Skin disorder
     Dates: start: 20171030, end: 20171121

REACTIONS (6)
  - Dizziness [Unknown]
  - Vomiting [Unknown]
  - Palpitations [Unknown]
  - Influenza like illness [Unknown]
  - Pyrexia [Unknown]
  - Toxicity to various agents [Unknown]

NARRATIVE: CASE EVENT DATE: 20171101
